FAERS Safety Report 7433540-1 (Version None)
Quarter: 2011Q2

REPORT INFORMATION
  Report Type: 
  Country: None (occurrence: None)
  Receive Date: 20110422
  Receipt Date: 20110419
  Transmission Date: 20111010
  Serious: No
  Sender: FDA-Public Use
  Company Number: US-B.I. PHARMACEUTICALS,INC./RIDGEFIELD-2011-BP-02102BP

PATIENT
  Age: 64 Year
  Sex: Male

DRUGS (9)
  1. ALTACE [Concomitant]
     Dosage: 2.5 MG
  2. MULTI-VITAMIN [Concomitant]
  3. ASPIRIN [Concomitant]
     Dosage: 81 MG
  4. FISH OIL [Concomitant]
     Dosage: 1200 MG
  5. METFORMIN [Concomitant]
     Dosage: 1000 MG
  6. PEPCID [Concomitant]
  7. ZOCOR [Concomitant]
     Dosage: 40 MG
  8. PRADAXA [Suspect]
     Indication: ATRIAL FIBRILLATION
     Dosage: 300 MG
     Route: 048
     Dates: start: 20110109
  9. TOPROL-XL [Concomitant]
     Dosage: 100 MG

REACTIONS (1)
  - BURN OESOPHAGEAL [None]
